FAERS Safety Report 5220529-6 (Version None)
Quarter: 2007Q1

REPORT INFORMATION
  Report Type: 
  Country: None (occurrence: None)
  Receive Date: 20070125
  Receipt Date: 20070125
  Transmission Date: 20070707
  Serious: Yes (Hospitalization)
  Sender: FDA-Public Use
  Company Number: None

PATIENT
  Sex: Female
  Weight: 82.1011 kg

DRUGS (4)
  1. LASIX [Suspect]
     Indication: HYPERTENSION
     Dosage: PO
     Route: 048
  2. ZOLOFT [Concomitant]
  3. HYZAAR [Concomitant]
  4. VICODIN [Concomitant]

REACTIONS (5)
  - CHEST PAIN [None]
  - HYPOAESTHESIA [None]
  - MUSCLE SPASMS [None]
  - MUSCULAR WEAKNESS [None]
  - NECK PAIN [None]
